FAERS Safety Report 18224133 (Version 2)
Quarter: 2020Q3

REPORT INFORMATION
  Report Type: Spontaneous
  Country: US (occurrence: US)
  Receive Date: 20200902
  Receipt Date: 20200903
  Transmission Date: 20201103
  Serious: No
  Sender: FDA-Public Use
  Company Number: US-PFIZER INC-2020339593

PATIENT
  Age: 77 Year
  Sex: Female

DRUGS (1)
  1. INLYTA [Suspect]
     Active Substance: AXITINIB
     Indication: RENAL CANCER
     Dosage: 1 MG

REACTIONS (5)
  - Feeding disorder [Recovering/Resolving]
  - Dysgeusia [Unknown]
  - Weight decreased [Recovering/Resolving]
  - Alopecia [Recovering/Resolving]
  - Oral pain [Unknown]
